FAERS Safety Report 8180266 (Version 2)
Quarter: 2013Q1

REPORT INFORMATION
  Report Type: Spontaneous
  Country: US (occurrence: US)
  Receive Date: 20111013
  Receipt Date: 20130220
  Transmission Date: 20140127
  Serious: Yes (Other)
  Sender: FDA-Public Use
  Company Number: US-ASTRAZENECA-2011SE59845

PATIENT
  Age: 55 Year
  Sex: Female

DRUGS (1)
  1. NEXIUM [Suspect]
     Indication: GASTROOESOPHAGEAL REFLUX DISEASE
     Route: 048

REACTIONS (7)
  - Fall [Unknown]
  - Patella fracture [Unknown]
  - Condition aggravated [Unknown]
  - Vein disorder [Unknown]
  - Abdominal pain upper [Unknown]
  - Malaise [Unknown]
  - Drug dose omission [Unknown]
